FAERS Safety Report 22851089 (Version 3)
Quarter: 2023Q4

REPORT INFORMATION
  Report Type: Spontaneous
  Country: GB (occurrence: GB)
  Receive Date: 20230822
  Receipt Date: 20231004
  Transmission Date: 20240109
  Serious: Yes (Other)
  Sender: FDA-Public Use
  Company Number: GB-MHRA-MED-202308200544369240-SYNVC

PATIENT
  Age: 31 Year
  Sex: Female
  Weight: 59 kg

DRUGS (1)
  1. BOTOX [Suspect]
     Active Substance: ONABOTULINUMTOXINA
     Indication: Adverse drug reaction
     Dosage: TIME INTERVAL: AS NECESSARY: SUBSTANCE NAME?CLOSTRIDIUM BOTULINUM TYPE A NEUROTOXIN COMPLEX 900KD...
     Route: 065

REACTIONS (8)
  - Incorrect route of product administration [Unknown]
  - Botulism [Not Recovered/Not Resolved]
  - Hypoaesthesia [Unknown]
  - Palpitations [Unknown]
  - Heart rate increased [Unknown]
  - Eyelid ptosis [Unknown]
  - Anxiety [Unknown]
  - Pyrexia [Unknown]

NARRATIVE: CASE EVENT DATE: 20230815
